FAERS Safety Report 19630112 (Version 1)
Quarter: 2021Q3

REPORT INFORMATION
  Report Type: Spontaneous
  Country: US (occurrence: US)
  Receive Date: 20210728
  Receipt Date: 20210728
  Transmission Date: 20211014
  Serious: No
  Sender: FDA-Public Use
  Company Number: US-SA-2021SA241965

PATIENT
  Sex: Female

DRUGS (12)
  1. ELDERBERRY [SAMBUCUS NIGRA] [Concomitant]
     Active Substance: DIETARY SUPPLEMENT\HERBALS
  2. AMLODIPINE [Concomitant]
     Active Substance: AMLODIPINE BESYLATE
  3. UBIQUINOL [Concomitant]
     Active Substance: UBIQUINOL
  4. BACLOFEN. [Concomitant]
     Active Substance: BACLOFEN
  5. NAC [ACETYLCYSTEINE] [Concomitant]
     Active Substance: ACETYLCYSTEINE
  6. LOSARTAN. [Concomitant]
     Active Substance: LOSARTAN
  7. ALPHA LIPOIC ACID [Concomitant]
     Active Substance: .ALPHA.-LIPOIC ACID
  8. LYRICA [Concomitant]
     Active Substance: PREGABALIN
  9. SERTRALINE [Concomitant]
     Active Substance: SERTRALINE HYDROCHLORIDE
  10. LUMIZYME [Suspect]
     Active Substance: ALGLUCOSIDASE ALFA
     Indication: GLYCOGEN STORAGE DISEASE TYPE II
     Dosage: 1750 MG, QOW
     Route: 042
     Dates: start: 20170112
  11. VAGIFEM [Concomitant]
     Active Substance: ESTRADIOL
  12. VITAMIIN C [Concomitant]
     Active Substance: ASCORBIC ACID

REACTIONS (1)
  - Urinary tract infection [Unknown]
